FAERS Safety Report 18820199 (Version 3)
Quarter: 2021Q1

REPORT INFORMATION
  Report Type: Report from Study
  Country: US (occurrence: US)
  Receive Date: 20210202
  Receipt Date: 20210315
  Transmission Date: 20210419
  Serious: Yes (Death, Life-Threatening, Other)
  Sender: FDA-Public Use
  Company Number: NVSC2020US266086

PATIENT
  Age: 65 Year
  Sex: Female

DRUGS (4)
  1. JAKAVI [Suspect]
     Active Substance: RUXOLITINIB
     Indication: COVID-19
     Dosage: 5 MG, BID
     Route: 048
     Dates: start: 20200830
  2. VANCOMYCIN [Suspect]
     Active Substance: VANCOMYCIN
     Indication: PRODUCT USED FOR UNKNOWN INDICATION
     Dosage: UNK
     Route: 065
  3. ZOSYN [Concomitant]
     Active Substance: PIPERACILLIN SODIUM\TAZOBACTAM SODIUM
     Indication: PRODUCT USED FOR UNKNOWN INDICATION
     Dosage: UNK
     Route: 065
  4. JAKAVI [Suspect]
     Active Substance: RUXOLITINIB
     Indication: CYTOKINE STORM
     Dosage: 5 MG, BID
     Route: 065
     Dates: start: 20200830

REACTIONS (5)
  - Acute respiratory failure [Fatal]
  - COVID-19 pneumonia [Fatal]
  - COVID-19 [Fatal]
  - Acute kidney injury [Fatal]
  - Gastric perforation [Recovered/Resolved]

NARRATIVE: CASE EVENT DATE: 20200917
